FAERS Safety Report 5844765-0 (Version None)
Quarter: 2008Q3

REPORT INFORMATION
  Report Type: 
  Country: None (occurrence: None)
  Receive Date: 20080814
  Receipt Date: 20080804
  Transmission Date: 20090109
  Serious: Yes (Other)
  Sender: FDA-Public Use
  Company Number: GB-JNJFOC-20080704718

PATIENT
  Sex: Female
  Weight: 39 kg

DRUGS (5)
  1. TOPAMAX [Suspect]
     Indication: EPILEPSY
     Dosage: TWO 15 MG DOSES
     Route: 048
  2. VALPROATE SODIUM [Concomitant]
     Indication: EPILEPSY
     Route: 065
  3. MOTILIUM [Concomitant]
     Indication: GASTROOESOPHAGEAL REFLUX DISEASE
     Route: 065
  4. OMEPRAZOLE [Concomitant]
     Indication: GASTROOESOPHAGEAL REFLUX DISEASE
     Route: 065
  5. MOVICOL [Concomitant]
     Indication: CONSTIPATION
     Route: 065

REACTIONS (3)
  - DEHYDRATION [None]
  - FLUID INTAKE REDUCED [None]
  - OLIGODIPSIA [None]
